FAERS Safety Report 10221368 (Version 1)
Quarter: 2014Q2

REPORT INFORMATION
  Report Type: Spontaneous
  Country: US (occurrence: US)
  Receive Date: 20140606
  Receipt Date: 20140606
  Transmission Date: 20141212
  Serious: No
  Sender: FDA-Public Use
  Company Number: US-BAYER-2014-084879

PATIENT
  Age: 90 Year
  Sex: Male
  Weight: 87 kg

DRUGS (1)
  1. ALEVE CAPLET [Suspect]
     Indication: ANALGESIC THERAPY
     Dosage: 1 DF,EVERY 12 HOURS
     Route: 048
     Dates: start: 201406, end: 201406

REACTIONS (1)
  - Drug ineffective [None]
